FAERS Safety Report 24564417 (Version 1)
Quarter: 2024Q4

REPORT INFORMATION
  Report Type: Spontaneous
  Country: JP (occurrence: JP)
  Receive Date: 20241030
  Receipt Date: 20241030
  Transmission Date: 20250115
  Serious: Yes (Hospitalization, Other)
  Sender: Steriscience PTE
  Company Number: JP-STERISCIENCE B.V.-2024-ST-001788

PATIENT
  Age: 31 Year
  Sex: Male

DRUGS (16)
  1. GANCICLOVIR SODIUM [Suspect]
     Active Substance: GANCICLOVIR SODIUM
     Indication: Adenoviral haemorrhagic cystitis
     Dosage: 500 MILLIGRAM PER DAY
     Route: 042
  2. MYCOPHENOLATE MOFETIL [Suspect]
     Active Substance: MYCOPHENOLATE MOFETIL
     Indication: Prophylaxis against graft versus host disease
     Dosage: UNK
     Route: 065
  3. TACROLIMUS [Suspect]
     Active Substance: TACROLIMUS
     Indication: Prophylaxis against graft versus host disease
     Dosage: UNK
     Route: 065
  4. LETERMOVIR [Concomitant]
     Active Substance: LETERMOVIR
     Indication: Antiviral prophylaxis
     Dosage: 480 MILLIGRAM PER DAY
     Route: 048
  5. ACYCLOVIR [Concomitant]
     Active Substance: ACYCLOVIR
     Indication: Antiviral prophylaxis
     Dosage: 500 MILLIGRAM PER DAY
     Route: 042
  6. ACYCLOVIR [Concomitant]
     Active Substance: ACYCLOVIR
     Indication: Adenoviral haemorrhagic cystitis
  7. VIDARABINE [Concomitant]
     Active Substance: VIDARABINE
     Indication: Adenoviral conjunctivitis
     Dosage: 500 MILLIGRAM, QD
     Route: 042
  8. RIBAVIRIN [Concomitant]
     Active Substance: RIBAVIRIN
     Indication: Adenoviral haemorrhagic cystitis
     Dosage: 1200 MILLIGRAM, QD
     Route: 048
  9. CYCLOPHOSPHAMIDE [Concomitant]
     Active Substance: CYCLOPHOSPHAMIDE
     Indication: Acute myeloid leukaemia
     Dosage: UNK
     Route: 065
  10. CYCLOPHOSPHAMIDE [Concomitant]
     Active Substance: CYCLOPHOSPHAMIDE
     Indication: Bone marrow conditioning regimen
  11. DAUNORUBICIN [Concomitant]
     Active Substance: DAUNORUBICIN
     Indication: Acute myeloid leukaemia
     Dosage: UNK
     Route: 065
  12. VINCRISTINE [Concomitant]
     Active Substance: VINCRISTINE
     Indication: Acute myeloid leukaemia
     Dosage: UNK
     Route: 065
  13. PREDNISONE [Concomitant]
     Active Substance: PREDNISONE
     Indication: Acute myeloid leukaemia
     Dosage: UNK
     Route: 065
  14. ASPARAGINASE [Concomitant]
     Active Substance: ASPARAGINASE
     Indication: Acute myeloid leukaemia
     Dosage: UNK
     Route: 065
  15. GILTERITINIB [Concomitant]
     Active Substance: GILTERITINIB
     Indication: Acute myeloid leukaemia (in remission)
     Dosage: UNK
     Route: 065
  16. CYTARABINE [Concomitant]
     Active Substance: CYTARABINE
     Indication: Bone marrow conditioning regimen
     Dosage: UNK
     Route: 065

REACTIONS (2)
  - Haematuria [Unknown]
  - Drug ineffective for unapproved indication [Unknown]
